FAERS Safety Report 6645783 (Version 5)
Quarter: 2017Q4

REPORT INFORMATION
  Report Type: Spontaneous
  Country: JP (occurrence: JP)
  Receive Date: 20080521
  Receipt Date: 20171122
  Transmission Date: 20180321
  Serious: Yes (Life-Threatening, Hospitalization, Other)
  Sender: FDA-Public Use
  Company Number: JP-PFIZER INC-2008040765

PATIENT
  Age: 48 Year
  Sex: Female
  Weight: 98.4 kg

DRUGS (11)
  1. VITAMEDIN CAPSULE [Concomitant]
     Dosage: 25 MG, 3X/DAY
     Route: 048
     Dates: start: 20080210
  2. REVATIO [Suspect]
     Active Substance: SILDENAFIL CITRATE
     Indication: PULMONARY HYPERTENSION
     Dosage: 20 MG, 1X/DAY
     Route: 048
     Dates: start: 20080424, end: 20080507
  3. WARFARIN [Interacting]
     Active Substance: WARFARIN
     Indication: PROPHYLAXIS
     Dosage: 3 MG, 1X/DAY
     Route: 048
     Dates: start: 20080314, end: 20080316
  4. ALDACTONE-A [Concomitant]
     Active Substance: SPIRONOLACTONE
     Route: 048
     Dates: start: 20080209
  5. MAG-LAX [Concomitant]
     Active Substance: MAGNESIUM HYDROXIDE\PARAFFIN
     Indication: CONSTIPATION
     Dosage: 330 MG, 3X/DAY
     Route: 048
     Dates: start: 20080308
  6. WARFARIN [Interacting]
     Active Substance: WARFARIN
     Dosage: 2 MG, 1X/DAY
     Route: 048
     Dates: start: 20080317, end: 20080321
  7. WARFARIN [Interacting]
     Active Substance: WARFARIN
     Dosage: 1.25 MG, 1X/DAY
     Route: 048
     Dates: start: 20080405, end: 20080430
  8. LASIX [Concomitant]
     Active Substance: FUROSEMIDE
     Indication: CARDIAC FAILURE
     Dosage: 40 MG, 1X/DAY
     Route: 048
     Dates: start: 20080209
  9. WARFARIN [Interacting]
     Active Substance: WARFARIN
     Dosage: 1 MG, 1X/DAY
     Route: 048
     Dates: start: 20080323, end: 20080404
  10. ZYLORIC [Concomitant]
     Active Substance: ALLOPURINOL
     Indication: HYPERURICAEMIA
     Dosage: 100 MG, 1X/DAY
     Route: 048
     Dates: start: 20080214
  11. PURSENNID [Concomitant]
     Active Substance: SENNOSIDES A AND B
     Indication: CONSTIPATION
     Dosage: 24 MG, 1X/DAY
     Route: 048
     Dates: start: 20080308

REACTIONS (2)
  - Drug interaction [Recovered/Resolved]
  - Menorrhagia [Recovered/Resolved]

NARRATIVE: CASE EVENT DATE: 20080429
